FAERS Safety Report 11157863 (Version 1)
Quarter: 2015Q2

REPORT INFORMATION
  Report Type: Spontaneous
  Country: US (occurrence: None)
  Receive Date: 20150602
  Receipt Date: 20150602
  Transmission Date: 20150821
  Serious: No
  Sender: FDA-Public Use
  Company Number: None

PATIENT
  Age: 70 Year
  Sex: Male
  Weight: 47.17 kg

DRUGS (1)
  1. RITUXIMAB [Suspect]
     Active Substance: RITUXIMAB
     Indication: CHRONIC LYMPHOCYTIC LEUKAEMIA
     Route: 042
     Dates: start: 20150325, end: 20150325

REACTIONS (18)
  - Defaecation urgency [None]
  - Flatulence [None]
  - Diarrhoea [None]
  - Vomiting [None]
  - Nausea [None]
  - Wheezing [None]
  - Productive cough [None]
  - Urticaria [None]
  - Dyspnoea [None]
  - Feeling hot [None]
  - Pruritus [None]
  - Tachycardia [None]
  - Hyperhidrosis [None]
  - Chills [None]
  - Dizziness [None]
  - Pallor [None]
  - Pyrexia [None]
  - Hypotension [None]

NARRATIVE: CASE EVENT DATE: 20150325
